FAERS Safety Report 20577977 (Version 1)
Quarter: 2022Q1

REPORT INFORMATION
  Report Type: Spontaneous
  Country: IN (occurrence: IN)
  Receive Date: 20220310
  Receipt Date: 20220310
  Transmission Date: 20220423
  Serious: Yes (Other)
  Sender: FDA-Public Use
  Company Number: IN-MYLANLABS-2022M1018431

PATIENT
  Age: 52 Year
  Sex: Male

DRUGS (11)
  1. ZIDOVUDINE [Interacting]
     Active Substance: ZIDOVUDINE
     Indication: HIV infection
     Dosage: UNK
     Route: 065
  2. NEVIRAPINE [Interacting]
     Active Substance: NEVIRAPINE
     Indication: HIV infection
     Dosage: UNK
     Route: 065
  3. DOXORUBICIN [Interacting]
     Active Substance: DOXORUBICIN
     Indication: Burkitt^s lymphoma stage IV
     Dosage: UNK, CYCLE, 6 CYCLES
     Route: 065
  4. ETOPOSIDE [Interacting]
     Active Substance: ETOPOSIDE
     Indication: Burkitt^s lymphoma stage IV
     Dosage: UNK, CYCLE, 6 CYCLES
     Route: 065
  5. METHOTREXATE [Interacting]
     Active Substance: METHOTREXATE
     Indication: Prophylaxis
     Dosage: UNK, CYCLE
     Route: 037
  6. PREDNISONE [Interacting]
     Active Substance: PREDNISONE
     Indication: Burkitt^s lymphoma stage IV
     Dosage: UNK, CYCLE, 6 CYCLES
     Route: 065
  7. RITUXIMAB [Interacting]
     Active Substance: RITUXIMAB
     Indication: Burkitt^s lymphoma stage IV
     Dosage: UNK, CYCLE, 6 CYCLES
     Route: 065
  8. VINCRISTINE [Interacting]
     Active Substance: VINCRISTINE
     Indication: Burkitt^s lymphoma stage IV
     Dosage: UNK, CYCLE, 6 CYCLES
     Route: 065
  9. CYCLOPHOSPHAMIDE [Interacting]
     Active Substance: CYCLOPHOSPHAMIDE
     Indication: Burkitt^s lymphoma stage IV
     Dosage: PREPHASE CHEMOTHERAPY
     Route: 065
  10. CYCLOPHOSPHAMIDE [Interacting]
     Active Substance: CYCLOPHOSPHAMIDE
     Dosage: UNK, CYCLE, 6 CYCLES
     Route: 065
  11. LAMIVUDINE [Concomitant]
     Active Substance: LAMIVUDINE
     Indication: HIV infection
     Dosage: UNK
     Route: 065

REACTIONS (2)
  - Anaemia macrocytic [Unknown]
  - Drug interaction [Unknown]
